FAERS Safety Report 23963658 (Version 2)
Quarter: 2024Q3

REPORT INFORMATION
  Report Type: Spontaneous
  Country: US (occurrence: US)
  Receive Date: 20240611
  Receipt Date: 20240701
  Transmission Date: 20241017
  Serious: No
  Sender: PFIZER
  Company Number: US-PFIZER INC-202400190338

PATIENT
  Age: 56 Year
  Sex: Male

DRUGS (1)
  1. CIBINQO [Suspect]
     Active Substance: ABROCITINIB
     Indication: Hidradenitis
     Dosage: 200 MG

REACTIONS (2)
  - Memory impairment [Unknown]
  - Off label use [Unknown]
